FAERS Safety Report 4291740-6 (Version None)
Quarter: 2004Q1

REPORT INFORMATION
  Report Type: 
  Country: None (occurrence: None)
  Receive Date: 20040211
  Receipt Date: 20030130
  Transmission Date: 20041129
  Serious: No
  Sender: FDA-Public Use
  Company Number: US-GLAXOSMITHKLINE-A0394737A

PATIENT
  Age: 44 Year
  Sex: Female

DRUGS (4)
  1. IMITREX [Suspect]
     Indication: MIGRAINE
     Route: 058
     Dates: start: 20030124
  2. IMITREX [Suspect]
     Route: 048
  3. EFFEXOR XR [Concomitant]
  4. XANAX [Concomitant]

REACTIONS (1)
  - DRUG INEFFECTIVE [None]
